FAERS Safety Report 5031169-6 (Version None)
Quarter: 2006Q2

REPORT INFORMATION
  Report Type: 
  Country: None (occurrence: None)
  Receive Date: 20060621
  Receipt Date: 20060530
  Transmission Date: 20061013
  Serious: Yes (Hospitalization)
  Sender: FDA-Public Use
  Company Number: HQWYE578131MAY06

PATIENT
  Sex: Male

DRUGS (5)
  1. ENBREL [Suspect]
     Indication: RHEUMATOID ARTHRITIS
     Route: 058
     Dates: start: 20060509, end: 20060526
  2. NORVASC [Concomitant]
     Dosage: UNSPECIFIED DOSE
     Dates: start: 20050628
  3. RHEUMATREX [Concomitant]
     Route: 048
     Dates: start: 20060221
  4. SELBEX [Concomitant]
     Dates: start: 20050601
  5. OLMESARTAN MEDOXOMIL [Concomitant]
     Dates: start: 20050628

REACTIONS (1)
  - PNEUMONIA [None]
